FAERS Safety Report 6791395-2 (Version None)
Quarter: 2010Q2

REPORT INFORMATION
  Report Type: 
  Country: None (occurrence: None)
  Receive Date: 20100624
  Receipt Date: 20100505
  Transmission Date: 20101027
  Serious: No
  Sender: FDA-Public Use
  Company Number: US-BAUSCH-2010BL002369

PATIENT
  Age: 45 Year
  Sex: Male

DRUGS (6)
  1. BESIVANCE [Suspect]
     Indication: PHOTOREFRACTIVE KERATECTOMY
     Route: 047
     Dates: start: 20100429, end: 20100504
  2. BESIVANCE [Suspect]
     Indication: OFF LABEL USE
     Route: 047
     Dates: start: 20100429, end: 20100504
  3. PRED FORTE [Concomitant]
  4. ACUVAIL [Concomitant]
  5. OPTIVE ARTIFICIAL TEARS [Concomitant]
  6. PROPARACAINE HCL [Concomitant]

REACTIONS (1)
  - CORNEAL EPITHELIUM DEFECT [None]
